FAERS Safety Report 6665956-5 (Version None)
Quarter: 2010Q1

REPORT INFORMATION
  Report Type: 
  Country: None (occurrence: None)
  Receive Date: 20100326
  Receipt Date: 20090527
  Transmission Date: 20100710
  Serious: Yes (Other)
  Sender: FDA-Public Use
  Company Number: 2009SU0125

PATIENT
  Sex: Female

DRUGS (3)
  1. SULAR [Suspect]
     Dosage: 10 MG, 17.5 MG,
  2. SULAR [Suspect]
  3. SULAR [Suspect]
     Dosage: 25.5 MG, ORAL
     Route: 048

REACTIONS (14)
  - ANXIETY [None]
  - CHILLS [None]
  - DIARRHOEA [None]
  - DRUG INEFFECTIVE [None]
  - DYSARTHRIA [None]
  - FATIGUE [None]
  - FEELING ABNORMAL [None]
  - FLUSHING [None]
  - HEADACHE [None]
  - NAUSEA [None]
  - OEDEMA PERIPHERAL [None]
  - PALPITATIONS [None]
  - THINKING ABNORMAL [None]
  - VISION BLURRED [None]
